FAERS Safety Report 25279429 (Version 1)
Quarter: 2025Q2

REPORT INFORMATION
  Report Type: Spontaneous
  Country: IL (occurrence: IL)
  Receive Date: 20250507
  Receipt Date: 20250507
  Transmission Date: 20250716
  Serious: Yes (Other)
  Sender: TEVA
  Company Number: IL-TEVA-VS-3327278

PATIENT
  Sex: Female

DRUGS (5)
  1. TAXOL [Suspect]
     Active Substance: PACLITAXEL
     Indication: Product used for unknown indication
     Route: 065
     Dates: start: 20250311, end: 2025
  2. TAXOL [Suspect]
     Active Substance: PACLITAXEL
     Indication: Product used for unknown indication
     Route: 065
     Dates: start: 2025, end: 2025
  3. TAXOL [Suspect]
     Active Substance: PACLITAXEL
     Indication: Product used for unknown indication
     Route: 065
     Dates: start: 2025, end: 2025
  4. SODIUM CHLORIDE [Suspect]
     Active Substance: SODIUM CHLORIDE
     Indication: Product used for unknown indication
     Route: 065
     Dates: start: 2025
  5. SODIUM CHLORIDE [Suspect]
     Active Substance: SODIUM CHLORIDE
     Indication: Product used for unknown indication
     Route: 065
     Dates: start: 2025

REACTIONS (5)
  - Angina pectoris [Recovered/Resolved]
  - Hypertension [Recovered/Resolved]
  - Chest discomfort [Not Recovered/Not Resolved]
  - Loss of consciousness [Recovered/Resolved]
  - Seizure [Recovered/Resolved]

NARRATIVE: CASE EVENT DATE: 20250101
